FAERS Safety Report 11643541 (Version 1)
Quarter: 2015Q4

REPORT INFORMATION
  Report Type: Spontaneous
  Country: US (occurrence: US)
  Receive Date: 20151020
  Receipt Date: 20151020
  Transmission Date: 20160304
  Serious: Yes (Death)
  Sender: FDA-Public Use
  Company Number: US-ACTAVIS-2015-21691

PATIENT
  Age: 45 Year
  Sex: Female

DRUGS (1)
  1. ALPRAZOLAM (WATSON LABORATORIES) [Suspect]
     Active Substance: ALPRAZOLAM
     Indication: ANXIETY
     Dosage: 2 TABLETS IN MORNING, 2 TABLETS IN EVENING, 3 TABLETS AT BEDTIME
     Route: 048

REACTIONS (6)
  - Therapeutic response changed [Not Recovered/Not Resolved]
  - Peripheral coldness [Not Recovered/Not Resolved]
  - Chest discomfort [Not Recovered/Not Resolved]
  - Nausea [Not Recovered/Not Resolved]
  - Completed suicide [Fatal]
  - Heart rate increased [Not Recovered/Not Resolved]

NARRATIVE: CASE EVENT DATE: 201510
